FAERS Safety Report 18896270 (Version 2)
Quarter: 2021Q1

REPORT INFORMATION
  Report Type: Spontaneous
  Country: JP (occurrence: JP)
  Receive Date: 20210216
  Receipt Date: 20210303
  Transmission Date: 20210420
  Serious: Yes (Life-Threatening, Hospitalization, Other)
  Sender: FDA-Public Use
  Company Number: JP-009507513-2101JPN000932J

PATIENT
  Age: 6 Year
  Sex: Female
  Weight: 20 kg

DRUGS (3)
  1. NOXAFIL [Suspect]
     Active Substance: POSACONAZOLE
     Indication: DISSEMINATED MUCORMYCOSIS
     Dosage: 120 MILLIGRAM, QD
     Route: 041
     Dates: start: 20201204, end: 20210108
  2. AMBISOME [Suspect]
     Active Substance: AMPHOTERICIN B
     Indication: DISSEMINATED MUCORMYCOSIS
     Dosage: 200 MILLIGRAM, QD
     Route: 042
     Dates: start: 20201121
  3. E KEPPRA [Concomitant]
     Active Substance: LEVETIRACETAM
     Indication: PROPHYLAXIS
     Dosage: 500 MILLIGRAM, QD
     Route: 042
     Dates: start: 20201127

REACTIONS (6)
  - Gastric ulcer [Recovering/Resolving]
  - Cardiac arrest [Recovering/Resolving]
  - Product use issue [Unknown]
  - Pancreatitis acute [Recovering/Resolving]
  - Arterial rupture [Recovering/Resolving]
  - Haemoptysis [Recovering/Resolving]

NARRATIVE: CASE EVENT DATE: 20201206
